FAERS Safety Report 12466205 (Version 1)
Quarter: 2016Q2

REPORT INFORMATION
  Report Type: Spontaneous
  Country: US (occurrence: US)
  Receive Date: 20160614
  Receipt Date: 20160614
  Transmission Date: 20160815
  Serious: Yes (Hospitalization, Other)
  Sender: FDA-Public Use
  Company Number: US-IMPAX LABORATORIES, INC-2016-IPXL-00588

PATIENT
  Age: 58 Year
  Sex: Male

DRUGS (3)
  1. METHADONE HYDROCHLORIDE. [Suspect]
     Active Substance: METHADONE HYDROCHLORIDE
     Indication: SUBSTANCE ABUSE
     Dosage: 80 MG, UNK
     Route: 048
  2. ONDANSETRON [Interacting]
     Active Substance: ONDANSETRON
     Indication: NAUSEA
     Dosage: 4 MG, UNK
     Route: 042
  3. ONDANSETRON [Interacting]
     Active Substance: ONDANSETRON
     Indication: VOMITING

REACTIONS (5)
  - Drug interaction [Unknown]
  - Nausea [Unknown]
  - Torsade de pointes [Unknown]
  - Vomiting [Unknown]
  - Hyperhidrosis [Unknown]
